FAERS Safety Report 7067828-3 (Version None)
Quarter: 2010Q4

REPORT INFORMATION
  Report Type: 
  Country: None (occurrence: None)
  Receive Date: 20101004
  Receipt Date: 20100917
  Transmission Date: 20110411
  Serious: Yes (Death, Hospitalization)
  Sender: FDA-Public Use
  Company Number: GAM-249-10-US

PATIENT
  Age: 77 Year
  Sex: Female

DRUGS (13)
  1. OCTAGAM [Suspect]
     Indication: CHRONIC INFLAMMATORY DEMYELINATING POLYRADICULONEUROPATHY
     Dosage: 40 G
     Dates: start: 20100514, end: 20100514
  2. NORVASC [Concomitant]
  3. TOPROL-XL [Concomitant]
  4. HYZAAR (HYDROCHLOROTHIAZIDE AND LOSARTAN) [Concomitant]
  5. PREMARIN (ESTROGEN) [Concomitant]
  6. TRANXENE [Concomitant]
  7. DARVOCET-N 100 (ACETAMINOPHEN AND PROPOXYPHENE) [Concomitant]
  8. CENTRUM SILVER (VITAMIN) [Concomitant]
  9. CRESTOR [Concomitant]
  10. CALCIUM [Concomitant]
  11. PREDNISONE [Concomitant]
  12. LASIX [Concomitant]
  13. VITAMIN B-12 [Concomitant]

REACTIONS (2)
  - CEREBROVASCULAR ACCIDENT [None]
  - MYOCARDIAL INFARCTION [None]
